FAERS Safety Report 7707659-1 (Version None)
Quarter: 2011Q3

REPORT INFORMATION
  Report Type: 
  Country: None (occurrence: None)
  Receive Date: 20110824
  Receipt Date: 20110810
  Transmission Date: 20111222
  Serious: Yes (Hospitalization)
  Sender: FDA-Public Use
  Company Number: US-UCBSA-039019

PATIENT
  Sex: Female
  Weight: 69.3 kg

DRUGS (6)
  1. NEXIUM [Concomitant]
     Indication: GASTROOESOPHAGEAL REFLUX DISEASE
     Dates: start: 20070201
  2. NORVASC [Concomitant]
     Indication: HYPERTENSION
     Dates: start: 20110803
  3. LACOSAMIDE [Suspect]
     Indication: EPILEPSY
     Route: 048
  4. AMOXICILLIN [Concomitant]
     Indication: GASTROENTERITIS PARACOLON BACILLUS
     Dates: start: 20110722
  5. LIVALO [Concomitant]
     Indication: HYPERCHOLESTEROLAEMIA
     Dates: start: 20100702
  6. CARAFATE [Concomitant]
     Indication: DIVERTICULITIS
     Dates: start: 20110803

REACTIONS (1)
  - SYNCOPE [None]
